FAERS Safety Report 21710849 (Version 2)
Quarter: 2023Q1

REPORT INFORMATION
  Report Type: Spontaneous
  Country: US (occurrence: US)
  Receive Date: 20221212
  Receipt Date: 20230220
  Transmission Date: 20230417
  Serious: No
  Sender: FDA-Public Use
  Company Number: US-VIIV HEALTHCARE LIMITED-US2022AMR180044

PATIENT
  Age: 38 Year
  Sex: Male

DRUGS (4)
  1. RILPIVIRINE [Suspect]
     Active Substance: RILPIVIRINE
     Indication: Product used for unknown indication
     Dosage: UNK UNK, Z,600/900 EVERY 2 MONTHS
     Route: 030
     Dates: start: 20221024
  2. RILPIVIRINE [Suspect]
     Active Substance: RILPIVIRINE
     Dosage: UNK UNK, Z,600/900 EVERY 2 MONTHS
     Route: 065
  3. CABOTEGRAVIR [Suspect]
     Active Substance: CABOTEGRAVIR
     Indication: Product used for unknown indication
     Dosage: UNK UNK, Z,600/900 EVERY 2 MONTHS
     Route: 030
     Dates: start: 20221024
  4. CABOTEGRAVIR [Suspect]
     Active Substance: CABOTEGRAVIR
     Dosage: UNK UNK, Z,600/900 EVERY 2 MONTHS
     Route: 065

REACTIONS (2)
  - Injection site pain [Unknown]
  - Injection site nodule [Not Recovered/Not Resolved]
